FAERS Safety Report 7034633-3 (Version None)
Quarter: 2010Q4

REPORT INFORMATION
  Report Type: 
  Country: None (occurrence: None)
  Receive Date: 20101008
  Receipt Date: 20100927
  Transmission Date: 20110411
  Serious: Yes (Hospitalization)
  Sender: FDA-Public Use
  Company Number: US-ELI_LILLY_AND_COMPANY-US201008005970

PATIENT
  Sex: Male
  Weight: 83.6 kg

DRUGS (23)
  1. PEMETREXED [Suspect]
     Indication: NON-SMALL CELL LUNG CANCER
     Dosage: 500 MG/M2 (1005MG), ONCE EVERY 21 DAYS
     Route: 042
     Dates: start: 20100622, end: 20100803
  2. GEMCITABINE HCL [Suspect]
     Indication: NON-SMALL CELL LUNG CANCER
     Dosage: 1250 MG/M2 (2512MG), ON DAY 1 AND 8 EVERY 21 DAYS
     Route: 042
     Dates: start: 20100622, end: 20100803
  3. MAGNESIUM OXIDE [Concomitant]
  4. POTASSIUM GLUCONATE TAB [Concomitant]
  5. ESTER-C [Concomitant]
  6. DILTIAZEM [Concomitant]
  7. LASIX [Concomitant]
  8. FOSINOPRIL [Concomitant]
  9. METOPROLOL TARTRATE [Concomitant]
  10. OMEPRAZOLE [Concomitant]
  11. ALPRAZOLAM [Concomitant]
  12. CENTRUM SILVER [Concomitant]
  13. VITAMIN D3 [Concomitant]
  14. GLUCOSAMINE/CHONDROITIN            /01625901/ [Concomitant]
  15. ADVIL LIQUI-GELS [Concomitant]
  16. LOVAZA [Concomitant]
  17. GARLIC [Concomitant]
  18. ASPIRIN [Concomitant]
  19. FOLIC ACID [Concomitant]
     Dosage: UNK, UNKNOWN
     Route: 065
     Dates: start: 20100609, end: 20100818
  20. FOLIC ACID [Concomitant]
     Dosage: UNK, UNKNOWN
     Route: 065
     Dates: start: 20100822
  21. VITAMIN B-12 [Concomitant]
     Dates: start: 20100609, end: 20100810
  22. ZOFRAN [Concomitant]
     Dates: start: 20100628
  23. DECADRON [Concomitant]
     Dosage: UNK, UNKNOWN
     Route: 065
     Dates: start: 20100622

REACTIONS (12)
  - BACK PAIN [None]
  - BLOOD ALBUMIN ABNORMAL [None]
  - DRUG TOXICITY [None]
  - FATIGUE [None]
  - HAEMOGLOBIN DECREASED [None]
  - MALIGNANT NEOPLASM PROGRESSION [None]
  - MUSCULAR WEAKNESS [None]
  - NAUSEA [None]
  - NEUTROPHIL COUNT INCREASED [None]
  - NON-SMALL CELL LUNG CANCER [None]
  - PLATELET COUNT ABNORMAL [None]
  - PYREXIA [None]
